FAERS Safety Report 4826376-9 (Version None)
Quarter: 2005Q4

REPORT INFORMATION
  Report Type: 
  Country: None (occurrence: None)
  Receive Date: 20051111
  Receipt Date: 20050602
  Transmission Date: 20060501
  Serious: Yes (Disabling)
  Sender: FDA-Public Use
  Company Number: JP-ABBOTT-05P-087-0302242-00

PATIENT
  Age: 56 Year
  Sex: Female

DRUGS (13)
  1. HUMIRA [Suspect]
     Indication: RHEUMATOID ARTHRITIS
     Route: 058
     Dates: start: 20050317, end: 20050526
  2. DICLOFENAC SODIUM [Concomitant]
     Indication: RHEUMATOID ARTHRITIS
     Dates: start: 20010830
  3. PREDNISOLONE [Concomitant]
     Indication: RHEUMATOID ARTHRITIS
     Route: 048
     Dates: start: 20031127
  4. LORCAM [Concomitant]
     Indication: RHEUMATOID ARTHRITIS
     Route: 048
     Dates: start: 20040205
  5. FAMOTIDINE [Concomitant]
     Indication: PROPHYLAXIS
     Route: 048
     Dates: start: 20040205
  6. PREDNISOLONE [Concomitant]
     Route: 048
     Dates: start: 20040722
  7. FLURBIPROFEN [Concomitant]
     Indication: RHEUMATOID ARTHRITIS
     Dates: start: 20040812
  8. BETAMETHASONE [Concomitant]
     Indication: CONJUNCTIVITIS
     Route: 031
     Dates: start: 20041021
  9. METHOTREXATE SODIUM [Concomitant]
     Indication: RHEUMATOID ARTHRITIS
     Route: 048
     Dates: start: 20041229, end: 20050119
  10. METHOTREXATE SODIUM [Concomitant]
     Route: 048
     Dates: start: 20050127, end: 20050211
  11. METHOTREXATE SODIUM [Concomitant]
     Route: 048
     Dates: start: 20050602
  12. FOLIC ACID [Concomitant]
     Indication: VITAMIN SUPPLEMENTATION
     Route: 048
     Dates: start: 20041231
  13. ACTARIT [Concomitant]
     Indication: RHEUMATOID ARTHRITIS
     Route: 048
     Dates: start: 20050217, end: 20050602

REACTIONS (9)
  - CONJUNCTIVITIS [None]
  - DRUG INEFFECTIVE [None]
  - EYE PAIN [None]
  - INTRAOCULAR PRESSURE INCREASED [None]
  - IRITIS [None]
  - OPTIC NEURITIS [None]
  - RETINAL DETACHMENT [None]
  - SCLERITIS [None]
  - VISUAL ACUITY REDUCED [None]
